FAERS Safety Report 15221640 (Version 2)
Quarter: 2018Q3

REPORT INFORMATION
  Report Type: Spontaneous
  Country: JP (occurrence: JP)
  Receive Date: 20180731
  Receipt Date: 20180829
  Transmission Date: 20181010
  Serious: Yes (Hospitalization, Other)
  Sender: FDA-Public Use
  Company Number: JP-GILEAD-2018-0352024

PATIENT
  Age: 78 Year
  Sex: Male

DRUGS (9)
  1. VEMLIDY [Suspect]
     Active Substance: TENOFOVIR ALAFENAMIDE FUMARATE
     Indication: PRODUCT USED FOR UNKNOWN INDICATION
     Dosage: UNKNOWN
     Route: 048
  2. E KEPPRA [Concomitant]
     Active Substance: LEVETIRACETAM
  3. DECADRON [Concomitant]
     Active Substance: DEXAMETHASONE
  4. ISOBIDE                            /07346501/ [Concomitant]
  5. LANSOPRAZOLE. [Concomitant]
     Active Substance: LANSOPRAZOLE
  6. MAGNESIUM OXIDE. [Concomitant]
     Active Substance: MAGNESIUM OXIDE
  7. BARACLUDE [Concomitant]
     Active Substance: ENTECAVIR
  8. CALFINA [Concomitant]
     Active Substance: ALFACALCIDOL
  9. DAIPHEN [Concomitant]
     Active Substance: SULFAMETHOXAZOLE\TRIMETHOPRIM

REACTIONS (2)
  - Neoplasm malignant [Unknown]
  - Neoplasm malignant [Not Recovered/Not Resolved]
